FAERS Safety Report 8199053-7 (Version None)
Quarter: 2012Q1

REPORT INFORMATION
  Report Type: 
  Country: None (occurrence: None)
  Receive Date: 20120309
  Receipt Date: 20120301
  Transmission Date: 20120608
  Serious: Yes (Life-Threatening, Hospitalization)
  Sender: FDA-Public Use
  Company Number: FR-GLAXOSMITHKLINE-B0781917A

PATIENT
  Sex: Female
  Weight: 49.9 kg

DRUGS (5)
  1. ARIXTRA [Suspect]
     Indication: OEDEMA PERIPHERAL
     Dosage: 2.5MG PER DAY
     Route: 058
     Dates: start: 20120106, end: 20120112
  2. PLAVIX [Concomitant]
     Route: 065
  3. OMEPRAZOLE [Concomitant]
     Route: 065
  4. ANAFRANIL [Concomitant]
     Route: 065
  5. TERCIAN [Concomitant]

REACTIONS (2)
  - SUBDURAL HAEMATOMA [None]
  - OFF LABEL USE [None]
